FAERS Safety Report 6950039-7 (Version None)
Quarter: 2010Q3

REPORT INFORMATION
  Report Type: 
  Country: None (occurrence: None)
  Receive Date: 20100828
  Receipt Date: 20100125
  Transmission Date: 20110219
  Serious: No
  Sender: FDA-Public Use
  Company Number: US-ABBOTT-10P-163-0622516-00

PATIENT
  Sex: Male
  Weight: 133.48 kg

DRUGS (4)
  1. NIASPAN [Suspect]
     Indication: CARDIAC DISORDER
     Dates: start: 20090101
  2. LANTUS [Concomitant]
     Indication: DIABETES MELLITUS
     Dosage: IN THE AM
  3. LANTUS [Concomitant]
     Dosage: IN THE PM
  4. REGULAR INSULIN [Concomitant]
     Indication: DIABETES MELLITUS
     Dosage: SLIDING SCALE

REACTIONS (1)
  - FLUSHING [None]
